FAERS Safety Report 6304928-7 (Version None)
Quarter: 2009Q3

REPORT INFORMATION
  Report Type: 
  Country: None (occurrence: None)
  Receive Date: 20090811
  Receipt Date: 20090805
  Transmission Date: 20100115
  Serious: Yes (Other)
  Sender: FDA-Public Use
  Company Number: US-AVENTIS-200916973US

PATIENT
  Sex: Male

DRUGS (2)
  1. LANTUS [Suspect]
     Indication: TYPE 1 DIABETES MELLITUS
     Dosage: DOSE: UNK
     Route: 058
     Dates: start: 20010101
  2. OPTICLIK (INSULIN INJECTION PEN) [Suspect]
     Indication: TYPE 1 DIABETES MELLITUS

REACTIONS (3)
  - BLINDNESS UNILATERAL [None]
  - DIABETIC RETINOPATHY [None]
  - VISUAL IMPAIRMENT [None]
